FAERS Safety Report 19744188 (Version 1)
Quarter: 2021Q3

REPORT INFORMATION
  Report Type: Spontaneous
  Country: US (occurrence: US)
  Receive Date: 20210820
  Receipt Date: 20210820
  Transmission Date: 20211014
  Serious: Yes (Other)
  Sender: FDA-Public Use
  Company Number: None

PATIENT
  Age: 65 Year
  Sex: Female

DRUGS (4)
  1. LENVIMA [Suspect]
     Active Substance: LENVATINIB
     Indication: METASTASES TO LUNG
  2. LENVIMA [Concomitant]
     Active Substance: LENVATINIB
     Dates: start: 20210812, end: 20210820
  3. LENVIMA [Suspect]
     Active Substance: LENVATINIB
     Indication: METASTASES TO ABDOMINAL CAVITY
  4. LENVIMA [Suspect]
     Active Substance: LENVATINIB
     Indication: ENDOMETRIAL CANCER
     Route: 048
     Dates: start: 20210812, end: 20210820

REACTIONS (2)
  - Anal fistula [None]
  - Vaginal haemorrhage [None]

NARRATIVE: CASE EVENT DATE: 20210819
